FAERS Safety Report 6699922-0 (Version None)
Quarter: 2010Q2

REPORT INFORMATION
  Report Type: 
  Country: None (occurrence: None)
  Receive Date: 20100419
  Receipt Date: 20091022
  Transmission Date: 20101027
  Serious: Yes (Other)
  Sender: FDA-Public Use
  Company Number: 09-001679

PATIENT
  Age: 43 Year
  Sex: Female
  Weight: 63.5 kg

DRUGS (7)
  1. LOESTRIN 24 FE [Suspect]
     Indication: PELVIC PAIN
     Dosage: 20/1000UG, ORAL
     Route: 048
     Dates: start: 20090101, end: 20091013
  2. LOESTRIN 24 FE [Suspect]
     Indication: VAGINAL HAEMORRHAGE
     Dosage: 20/1000UG, ORAL
     Route: 048
     Dates: start: 20090101, end: 20091013
  3. MIRENA [Concomitant]
  4. FLONASE [Concomitant]
  5. PREVACID [Concomitant]
  6. CLARITIN [Concomitant]
  7. ZITHROMAX [Concomitant]

REACTIONS (7)
  - BLOOD PRESSURE INCREASED [None]
  - BURNING SENSATION [None]
  - DEEP VEIN THROMBOSIS [None]
  - MUSCULOSKELETAL DISCOMFORT [None]
  - MUSCULOSKELETAL PAIN [None]
  - OEDEMA PERIPHERAL [None]
  - VARICOSE VEIN [None]
